FAERS Safety Report 15872694 (Version 1)
Quarter: 2019Q1

REPORT INFORMATION
  Report Type: Other
  Country: US (occurrence: US)
  Receive Date: 20190126
  Receipt Date: 20190126
  Transmission Date: 20190417
  Serious: No
  Sender: FDA-Public Use
  Company Number: US-ACORDA-ACO_149016_2018

PATIENT
  Sex: Male

DRUGS (1)
  1. AMPYRA [Suspect]
     Active Substance: DALFAMPRIDINE
     Indication: PRODUCT USED FOR UNKNOWN INDICATION
     Dosage: 10 MG, BID
     Route: 048
     Dates: start: 20170324

REACTIONS (6)
  - Plantar fasciitis [Unknown]
  - Peroneal nerve palsy [Unknown]
  - Fall [Unknown]
  - Gait disturbance [Unknown]
  - Arthropathy [Unknown]
  - Fatigue [Unknown]
